FAERS Safety Report 5916796-3 (Version None)
Quarter: 2008Q3

REPORT INFORMATION
  Report Type: 
  Country: None (occurrence: None)
  Receive Date: 20080909
  Receipt Date: 20080527
  Transmission Date: 20090109
  Serious: Yes (Other)
  Sender: FDA-Public Use
  Company Number: 163-20785-07030609

PATIENT
  Age: 85 Year
  Sex: Female

DRUGS (14)
  1. THALOMID [Suspect]
     Indication: MULTIPLE MYELOMA
     Dosage: 200 MG, 2 IN 1 D, ORAL ; 150 MG, DAILY, ORAL ; 100 MG, 1 IN 1 D ; 50 MG, 1 IN 1 D, ORAL
     Route: 048
     Dates: start: 20070223, end: 20070301
  2. THALOMID [Suspect]
     Indication: MULTIPLE MYELOMA
     Dosage: 200 MG, 2 IN 1 D, ORAL ; 150 MG, DAILY, ORAL ; 100 MG, 1 IN 1 D ; 50 MG, 1 IN 1 D, ORAL
     Route: 048
     Dates: start: 20070309, end: 20071001
  3. THALOMID [Suspect]
     Indication: MULTIPLE MYELOMA
     Dosage: 200 MG, 2 IN 1 D, ORAL ; 150 MG, DAILY, ORAL ; 100 MG, 1 IN 1 D ; 50 MG, 1 IN 1 D, ORAL
     Route: 048
     Dates: start: 20071105, end: 20080201
  4. THALOMID [Suspect]
     Indication: MULTIPLE MYELOMA
     Dosage: 200 MG, 2 IN 1 D, ORAL ; 150 MG, DAILY, ORAL ; 100 MG, 1 IN 1 D ; 50 MG, 1 IN 1 D, ORAL
     Route: 048
     Dates: start: 20080208, end: 20080328
  5. ASPIRIN [Concomitant]
  6. PREMARIN [Concomitant]
  7. GLUCOSAMINE (GLUCOSAMINE) [Concomitant]
  8. NEXIUM [Concomitant]
  9. NEURONTIN [Concomitant]
  10. DYAZIDE [Concomitant]
  11. ASCORBIC ACID [Concomitant]
  12. MYSOLINE [Concomitant]
  13. CENTRUM (CENTRUM) [Concomitant]
  14. DEXAMETHASONE TAB [Concomitant]

REACTIONS (4)
  - GASTRIC HAEMORRHAGE [None]
  - NERVE INJURY [None]
  - NEUROPATHY PERIPHERAL [None]
  - THROMBOSIS [None]
